FAERS Safety Report 15277822 (Version 2)
Quarter: 2018Q3

REPORT INFORMATION
  Report Type: Report from Study
  Country: None (occurrence: SE)
  Receive Date: 20180814
  Receipt Date: 20180831
  Transmission Date: 20181010
  Serious: Yes (Other)
  Sender: FDA-Public Use
  Company Number: SE-ABBVIE-18P-150-2445252-00

PATIENT
  Sex: Male

DRUGS (3)
  1. VENETOCLAX. [Suspect]
     Active Substance: VENETOCLAX
     Dosage: DOSE OF 100 MG AND SINCE THEN RAMP UP TO DOSE OF 400 MG/DAY.
     Route: 048
     Dates: start: 20180712
  2. IBRUTINIB [Suspect]
     Active Substance: IBRUTINIB
     Indication: CHRONIC LYMPHOCYTIC LEUKAEMIA
     Route: 048
     Dates: start: 20180502, end: 20180710
  3. VENETOCLAX. [Suspect]
     Active Substance: VENETOCLAX
     Indication: CHRONIC LYMPHOCYTIC LEUKAEMIA
     Route: 048
     Dates: start: 20180710, end: 20180710

REACTIONS (6)
  - Wrong dose [Recovered/Resolved]
  - Blood uric acid increased [Recovered/Resolved]
  - Tumour lysis syndrome [Recovered/Resolved]
  - Night sweats [Unknown]
  - Blood phosphorus increased [Recovered/Resolved]
  - White blood cell count decreased [Unknown]

NARRATIVE: CASE EVENT DATE: 201807
